FAERS Safety Report 20165244 (Version 1)
Quarter: 2021Q4

REPORT INFORMATION
  Report Type: Report from Study
  Country: US (occurrence: US)
  Receive Date: 20211209
  Receipt Date: 20211209
  Transmission Date: 20220303
  Serious: No
  Sender: FDA-Public Use
  Company Number: US-BIOVITRUM-2021US11784

PATIENT
  Sex: Male

DRUGS (4)
  1. SYNAGIS [Suspect]
     Active Substance: PALIVIZUMAB
     Indication: Antiviral prophylaxis
     Route: 030
     Dates: start: 20211025
  2. NYSTATIN [Concomitant]
     Active Substance: NYSTATIN
     Indication: Antiviral prophylaxis
  3. FLOVENT [Concomitant]
     Active Substance: FLUTICASONE PROPIONATE
  4. POLY- VI- SOL [Concomitant]

REACTIONS (2)
  - Fungal skin infection [Unknown]
  - Oral candidiasis [Unknown]
